FAERS Safety Report 14573769 (Version 2)
Quarter: 2018Q3

REPORT INFORMATION
  Report Type: Report from Study
  Country: ES (occurrence: ES)
  Receive Date: 20180226
  Receipt Date: 20180709
  Transmission Date: 20181010
  Serious: Yes (Other)
  Sender: FDA-Public Use
  Company Number: ES-MYLANLABS-2018M1012318

PATIENT
  Age: 39 Year
  Sex: Male

DRUGS (4)
  1. COPAXONE [Suspect]
     Active Substance: GLATIRAMER ACETATE
     Indication: MULTIPLE SCLEROSIS
     Dosage: UNK UNK, 3QW
     Route: 058
     Dates: start: 20150805, end: 20180130
  2. DIAZEPAM. [Suspect]
     Active Substance: DIAZEPAM
     Indication: BACK PAIN
     Dosage: UNK
     Route: 048
  3. IBUPROFEN. [Suspect]
     Active Substance: IBUPROFEN
     Indication: BACK PAIN
     Dosage: 600 MG, UNK
     Route: 048
  4. NOLOTIL                            /06276702/ [Suspect]
     Active Substance: METAMIZOLE MAGNESIUM
     Indication: BACK PAIN
     Dosage: NOLOTIL
     Route: 048

REACTIONS (4)
  - Multiple sclerosis relapse [Not Recovered/Not Resolved]
  - Vertigo [Not Recovered/Not Resolved]
  - Asthenia [Not Recovered/Not Resolved]
  - Hypoaesthesia [Not Recovered/Not Resolved]

NARRATIVE: CASE EVENT DATE: 20170908
